FAERS Safety Report 19508751 (Version 1)
Quarter: 2021Q3

REPORT INFORMATION
  Report Type: Report from Study
  Country: GB (occurrence: GB)
  Receive Date: 20210709
  Receipt Date: 20210709
  Transmission Date: 20211014
  Serious: Yes (Other)
  Sender: FDA-Public Use
  Company Number: GB-BIOGEN-2021BI01027991

PATIENT
  Sex: Female

DRUGS (1)
  1. TYSABRI [Suspect]
     Active Substance: NATALIZUMAB
     Indication: EXPOSURE VIA PARTNER
     Dosage: INFUSE FOR 1 HOUR
     Route: 065
     Dates: start: 20200903

REACTIONS (2)
  - Pre-eclampsia [Not Recovered/Not Resolved]
  - Paternal exposure before pregnancy [Not Recovered/Not Resolved]
